FAERS Safety Report 11538604 (Version 2)
Quarter: 2015Q4

REPORT INFORMATION
  Report Type: Report from Study
  Country: US (occurrence: US)
  Receive Date: 20150923
  Receipt Date: 20151012
  Transmission Date: 20160304
  Serious: Yes (Hospitalization)
  Sender: FDA-Public Use
  Company Number: PHEH2015US018284

PATIENT
  Sex: Female
  Weight: 97.96 kg

DRUGS (1)
  1. GILENYA [Suspect]
     Active Substance: FINGOLIMOD HYDROCHLORIDE
     Indication: MULTIPLE SCLEROSIS
     Dosage: 0.5 MG, QD
     Route: 048
     Dates: start: 20150727

REACTIONS (4)
  - Infection [Recovering/Resolving]
  - Malaise [Recovering/Resolving]
  - Sinus disorder [Recovering/Resolving]
  - Abdominal discomfort [Recovering/Resolving]
